FAERS Safety Report 5163924-6 (Version None)
Quarter: 2006Q4

REPORT INFORMATION
  Report Type: 
  Country: None (occurrence: None)
  Receive Date: 20061124
  Receipt Date: 20061109
  Transmission Date: 20070319
  Serious: Yes (Death)
  Sender: FDA-Public Use
  Company Number: 2005167381

PATIENT
  Age: 75 Year
  Sex: Female

DRUGS (3)
  1. BEXTRA [Suspect]
     Indication: CHEST PAIN
     Dosage: (10 MG)
     Dates: start: 20021001, end: 20031001
  2. BEXTRA [Suspect]
     Indication: INFLAMMATION
     Dosage: (10 MG)
     Dates: start: 20021001, end: 20031001
  3. BEXTRA [Suspect]
     Indication: PAIN
     Dosage: (10 MG)
     Dates: start: 20021001, end: 20031001

REACTIONS (1)
  - MYOCARDIAL INFARCTION [None]
